FAERS Safety Report 9316430 (Version 2)
Quarter: 2013Q1

REPORT INFORMATION
  Report Type: Spontaneous
  Country: US (occurrence: None)
  Receive Date: 20121129
  Receipt Date: 20121213
  Transmission Date: 20140127
  Serious: Yes (Other)
  Sender: FDA-Public Use
  Company Number: AUR-APL-2012-04918

PATIENT
  Age: 18 Year
  Sex: Male

DRUGS (3)
  1. ZIDOVUDINE [Suspect]
     Indication: ANTIRETROVIRAL THERAPY
  2. DIDANOSINE [Suspect]
     Indication: ANTIRETROVIRAL THERAPY
  3. LOPINAVIR/RITONAVIR [Suspect]
     Indication: ANTIRETROVIRAL THERAPY

REACTIONS (9)
  - Post streptococcal glomerulonephritis [None]
  - Immune reconstitution inflammatory syndrome [None]
  - Anaemia [None]
  - Renal failure acute [None]
  - T-lymphocyte count decreased [None]
  - CD4 lymphocytes decreased [None]
  - Herpes zoster [None]
  - Back pain [None]
  - Haematuria [None]
